FAERS Safety Report 17397595 (Version 1)
Quarter: 2020Q1

REPORT INFORMATION
  Report Type: Spontaneous
  Country: IT (occurrence: IT)
  Receive Date: 20200210
  Receipt Date: 20200210
  Transmission Date: 20200409
  Serious: Yes (Hospitalization)
  Sender: FDA-Public Use
  Company Number: IT-JNJFOC-20200201736

PATIENT
  Age: 73 Year
  Sex: Male
  Weight: 80 kg

DRUGS (2)
  1. METOPROLOL. [Concomitant]
     Active Substance: METOPROLOL
     Dosage: 100 MG, QD
  2. RIVAROXABAN [Suspect]
     Active Substance: RIVAROXABAN
     Indication: CARDIAC FIBRILLATION
     Dosage: 20 MG, QD
     Route: 048
     Dates: start: 20181121, end: 20191201

REACTIONS (1)
  - Ischaemic stroke [Recovered/Resolved]

NARRATIVE: CASE EVENT DATE: 20191201
